FAERS Safety Report 6673849-2 (Version None)
Quarter: 2010Q2

REPORT INFORMATION
  Report Type: 
  Country: None (occurrence: None)
  Receive Date: 20100407
  Receipt Date: 20100329
  Transmission Date: 20101027
  Serious: Yes (Other)
  Sender: FDA-Public Use
  Company Number: 2010SP009433

PATIENT
  Age: 32 Year
  Sex: Female
  Weight: 69 kg

DRUGS (3)
  1. IMPLANON [Suspect]
     Indication: CONTRACEPTION
     Dosage: 68 MG;SBDE
     Dates: start: 20041015
  2. EUTIROX /00068001/ [Concomitant]
  3. NOVOTIRAL /00106001/ [Concomitant]

REACTIONS (7)
  - ABORTION SPONTANEOUS [None]
  - BLOOD OESTROGEN DECREASED [None]
  - BLOOD PROLACTIN DECREASED [None]
  - DRUG EXPOSURE DURING PREGNANCY [None]
  - IMPLANT SITE PAIN [None]
  - INFERTILITY FEMALE [None]
  - MEDICAL DEVICE COMPLICATION [None]
